FAERS Safety Report 16799165 (Version 1)
Quarter: 2019Q3

REPORT INFORMATION
  Report Type: Spontaneous
  Country: US (occurrence: US)
  Receive Date: 20190912
  Receipt Date: 20190912
  Transmission Date: 20191005
  Serious: No
  Sender: FDA-Public Use
  Company Number: US-PFIZER INC-2018451200

PATIENT
  Age: 79 Year
  Sex: Female
  Weight: 88.44 kg

DRUGS (3)
  1. LYRICA [Suspect]
     Active Substance: PREGABALIN
     Indication: NEUROPATHY PERIPHERAL
     Dosage: 50 MG IN THE MORNING
  2. LYRICA [Suspect]
     Active Substance: PREGABALIN
     Dosage: 50 MG, AT NIGHT
  3. LYRICA [Suspect]
     Active Substance: PREGABALIN
     Dosage: 25 MG, DAILY
     Route: 048

REACTIONS (3)
  - Dizziness [Unknown]
  - Drug ineffective [Unknown]
  - Expired product administered [Unknown]
